FAERS Safety Report 5281442-1 (Version None)
Quarter: 2007Q1

REPORT INFORMATION
  Report Type: 
  Country: None (occurrence: None)
  Receive Date: 20070330
  Receipt Date: 20070322
  Transmission Date: 20070707
  Serious: Yes (Hospitalization, Other)
  Sender: FDA-Public Use
  Company Number: CN-BAYER-200512170GDS

PATIENT
  Age: 74 Year
  Sex: Male

DRUGS (3)
  1. AVELOX [Suspect]
     Indication: LUNG INFECTION
     Dosage: TOTAL DAILY DOSE: 400 MG  UNIT DOSE: 400 MG
     Route: 048
     Dates: start: 20050712, end: 20050712
  2. TAZOCIN [Concomitant]
     Indication: LUNG INFECTION
     Route: 065
     Dates: start: 20050601, end: 20050601
  3. MEPEM (MEROPENEM) [Concomitant]
     Indication: LUNG INFECTION
     Route: 065
     Dates: start: 20050601, end: 20050601

REACTIONS (13)
  - APHASIA [None]
  - ASTHMA [None]
  - DIARRHOEA [None]
  - GASTRIC HAEMORRHAGE [None]
  - HAEMATEMESIS [None]
  - HENOCH-SCHONLEIN PURPURA [None]
  - HYPERSENSITIVITY [None]
  - NEPHRITIS ALLERGIC [None]
  - PALPITATIONS [None]
  - PURPURA [None]
  - RASH [None]
  - TACHYPNOEA [None]
  - URINARY TRACT INFECTION [None]
